FAERS Safety Report 4983632-1 (Version None)
Quarter: 2006Q2

REPORT INFORMATION
  Report Type: 
  Country: None (occurrence: None)
  Receive Date: 20060425
  Receipt Date: 20060425
  Transmission Date: 20061013
  Serious: Yes (Disabling)
  Sender: FDA-Public Use
  Company Number: None

PATIENT
  Sex: Female
  Weight: 56.6996 kg

DRUGS (1)
  1. ZOMETA [Suspect]
     Indication: BONE NEOPLASM MALIGNANT
     Dosage: MONTHLY   IV
     Route: 042
     Dates: start: 20050101, end: 20050826

REACTIONS (8)
  - BONE DISORDER [None]
  - IMPAIRED HEALING [None]
  - LOOSE TOOTH [None]
  - MOUTH HAEMORRHAGE [None]
  - OSTEONECROSIS [None]
  - PERIODONTAL DISEASE [None]
  - TOOTH DISORDER [None]
  - TOOTH INFECTION [None]
